FAERS Safety Report 8200232-0 (Version None)
Quarter: 2012Q1

REPORT INFORMATION
  Report Type: 
  Country: None (occurrence: None)
  Receive Date: 20120312
  Receipt Date: 20120306
  Transmission Date: 20120608
  Serious: No
  Sender: FDA-Public Use
  Company Number: US-PFIZER INC-2012060838

PATIENT
  Sex: Male

DRUGS (3)
  1. NORVASC [Suspect]
     Dosage: 5 MG, 1X/DAY
     Route: 048
  2. LIPITOR [Suspect]
     Dosage: 20 MG, (ONE PR HS)
     Route: 048
  3. ACCURETIC [Suspect]
     Dosage: 20/12.5, DAILY
     Route: 048

REACTIONS (2)
  - ASTHMA [None]
  - HYPERTENSION [None]
